FAERS Safety Report 4337031-6 (Version None)
Quarter: 2004Q1

REPORT INFORMATION
  Report Type: 
  Country: None (occurrence: None)
  Receive Date: 20040329
  Receipt Date: 20040116
  Transmission Date: 20041129
  Serious: No
  Sender: FDA-Public Use
  Company Number: USA040156794

PATIENT
  Age: 47 Year
  Sex: Female
  Weight: 57 kg

DRUGS (8)
  1. STRATTERA [Suspect]
     Indication: BRAIN DAMAGE
     Dosage: 40 MG/DAY
     Dates: start: 20030901
  2. STRATTERA [Suspect]
     Indication: INTRACRANIAL ANEURYSM
     Dosage: 40 MG/DAY
     Dates: start: 20030901
  3. TOPAMAX [Concomitant]
  4. YASMIN [Concomitant]
  5. FIORICET [Concomitant]
  6. INDOCIN [Concomitant]
  7. ZOFRAN [Concomitant]
  8. ZOLOFT [Concomitant]

REACTIONS (8)
  - ABDOMINAL DISCOMFORT [None]
  - DECREASED APPETITE [None]
  - DERMAL CYST [None]
  - FATIGUE [None]
  - LOOSE STOOLS [None]
  - MENTAL IMPAIRMENT [None]
  - METRORRHAGIA [None]
  - NAUSEA [None]
